FAERS Safety Report 8362514-1 (Version None)
Quarter: 2012Q2

REPORT INFORMATION
  Report Type: 
  Country: None (occurrence: None)
  Receive Date: 20120516
  Receipt Date: 20120508
  Transmission Date: 20120825
  Serious: Yes (Hospitalization, Other)
  Sender: FDA-Public Use
  Company Number: US-ELI_LILLY_AND_COMPANY-US201205004004

PATIENT
  Sex: Male

DRUGS (3)
  1. METFORMIN HCL [Concomitant]
     Dosage: UNK
     Dates: end: 20120301
  2. LANTUS [Concomitant]
     Dosage: 1 DF, EACH EVENING
  3. HUMALOG [Suspect]
     Indication: DIABETES MELLITUS
     Dosage: UNK, PRN

REACTIONS (4)
  - CARDIAC FAILURE CONGESTIVE [None]
  - FLUID RETENTION [None]
  - BLOOD GLUCOSE INCREASED [None]
  - RENAL DISORDER [None]
